FAERS Safety Report 9604588 (Version 1)
Quarter: 2013Q4

REPORT INFORMATION
  Report Type: Spontaneous
  Country: JP (occurrence: JP)
  Receive Date: 20131008
  Receipt Date: 20131008
  Transmission Date: 20140711
  Serious: Yes (Other)
  Sender: FDA-Public Use
  Company Number: JP-SA-2013SA099090

PATIENT
  Age: 40 Year
  Sex: Male

DRUGS (10)
  1. OXALIPLATIN [Suspect]
     Indication: COLON CANCER
     Dosage: INJECTION
     Route: 041
     Dates: start: 201101
  2. OXALIPLATIN [Suspect]
     Indication: COLON CANCER
     Dosage: INJECTION
     Route: 041
  3. OXALIPLATIN [Suspect]
     Indication: COLON CANCER
     Dosage: INJECTION
     Route: 041
  4. OXALIPLATIN [Suspect]
     Indication: COLON CANCER
     Dosage: INJECTION
     Route: 041
     Dates: end: 20130122
  5. XELODA [Concomitant]
     Indication: COLON CANCER
     Dates: start: 201101
  6. XELODA [Concomitant]
     Indication: COLON CANCER
  7. XELODA [Concomitant]
     Indication: COLON CANCER
  8. XELODA [Concomitant]
     Indication: COLON CANCER
     Dates: start: 201303
  9. AVASTIN [Concomitant]
     Indication: COLON CANCER
     Dosage: 480 MG/BODY
     Dates: start: 201101
  10. AVASTIN [Concomitant]
     Indication: COLON CANCER
     Dates: start: 201303

REACTIONS (4)
  - Varices oesophageal [Unknown]
  - Platelet count decreased [Unknown]
  - Splenomegaly [Unknown]
  - White blood cell count decreased [Unknown]
